FAERS Safety Report 20830361 (Version 4)
Quarter: 2022Q4

REPORT INFORMATION
  Report Type: Spontaneous
  Country: US (occurrence: US)
  Receive Date: 20220514
  Receipt Date: 20221006
  Transmission Date: 20230113
  Serious: No
  Sender: FDA-Public Use
  Company Number: US-BRISTOL-MYERS SQUIBB COMPANY-2022-036435

PATIENT
  Age: 74 Year
  Sex: Male
  Weight: 98.88 kg

DRUGS (3)
  1. REVLIMID [Suspect]
     Active Substance: LENALIDOMIDE
     Indication: Plasma cell myeloma
     Dosage: DAYS 1-14 Q 21 DAYS ?DRUG ONGOING
     Route: 048
     Dates: start: 20220420
  2. REVLIMID [Suspect]
     Active Substance: LENALIDOMIDE
     Dosage: FREQUENCY: DAILY ON DAYS 1-14 EVERY 21 DAY.
     Route: 048
     Dates: start: 20220420
  3. REVLIMID [Suspect]
     Active Substance: LENALIDOMIDE
     Dosage: D1-14 EVERY 21 DAYS
     Route: 048
     Dates: start: 20220420

REACTIONS (8)
  - COVID-19 [Unknown]
  - Insomnia [Recovering/Resolving]
  - Hypotension [Recovering/Resolving]
  - Fatigue [Not Recovered/Not Resolved]
  - Herpes zoster [Recovering/Resolving]
  - Visual impairment [Not Recovered/Not Resolved]
  - Intentional product use issue [Unknown]
  - Tremor [Not Recovered/Not Resolved]
